FAERS Safety Report 14215049 (Version 1)
Quarter: 2017Q4

REPORT INFORMATION
  Report Type: Spontaneous
  Country: US (occurrence: US)
  Receive Date: 20171122
  Receipt Date: 20171122
  Transmission Date: 20180321
  Serious: No
  Sender: FDA-Public Use
  Company Number: US-ROCHE-1873554

PATIENT
  Age: 72 Year
  Sex: Male

DRUGS (1)
  1. HERCEPTIN [Suspect]
     Active Substance: TRASTUZUMAB
     Indication: CARCINOMA EX-PLEOMORPHIC ADENOMA
     Route: 065

REACTIONS (1)
  - Diarrhoea [Unknown]
